FAERS Safety Report 19719936 (Version 1)
Quarter: 2021Q3

REPORT INFORMATION
  Report Type: Spontaneous
  Country: US (occurrence: US)
  Receive Date: 20210819
  Receipt Date: 20210819
  Transmission Date: 20211014
  Serious: No
  Sender: FDA-Public Use
  Company Number: None

PATIENT
  Age: 74 Year
  Sex: Male

DRUGS (2)
  1. ASPIRIN (ASPIRIN 81MG TAB, EC) [Suspect]
     Active Substance: ASPIRIN
     Indication: STENT PLACEMENT
     Dates: start: 20191022, end: 20210802
  2. CLOPIDOGREL (CLOPIDOGREL BISULFATE 75MG TAB) [Suspect]
     Active Substance: CLOPIDOGREL BISULFATE
     Indication: STENT PLACEMENT
     Dates: start: 20191022, end: 20210802

REACTIONS (4)
  - Periorbital haemorrhage [None]
  - Epistaxis [None]
  - Haemoptysis [None]
  - Haemorrhage [None]

NARRATIVE: CASE EVENT DATE: 20210802
